FAERS Safety Report 10210658 (Version 1)
Quarter: 2014Q2

REPORT INFORMATION
  Report Type: Spontaneous
  Country: US (occurrence: US)
  Receive Date: 20140602
  Receipt Date: 20140602
  Transmission Date: 20141212
  Serious: Yes (Disabling, Other)
  Sender: FDA-Public Use
  Company Number: US-AMGEN INC.-USASP2014038893

PATIENT
  Sex: Female

DRUGS (1)
  1. ARANESP [Suspect]
     Indication: RENAL FAILURE CHRONIC
     Dosage: UNK
     Route: 065
     Dates: start: 201402

REACTIONS (4)
  - Porphyria [Unknown]
  - Serum ferritin abnormal [Unknown]
  - Iron deficiency [Unknown]
  - Alopecia [Unknown]
